FAERS Safety Report 7756151-7 (Version None)
Quarter: 2011Q3

REPORT INFORMATION
  Report Type: 
  Country: None (occurrence: None)
  Receive Date: 20110914
  Receipt Date: 20110901
  Transmission Date: 20111222
  Serious: Yes (Disabling)
  Sender: FDA-Public Use
  Company Number: 11-065

PATIENT
  Sex: Male

DRUGS (1)
  1. CEPHALEXIN [Suspect]

REACTIONS (1)
  - DEAFNESS [None]
